FAERS Safety Report 19083113 (Version 2)
Quarter: 2021Q2

REPORT INFORMATION
  Report Type: Spontaneous
  Country: US (occurrence: US)
  Receive Date: 20210401
  Receipt Date: 20210429
  Transmission Date: 20210717
  Serious: Yes (Hospitalization)
  Sender: FDA-Public Use
  Company Number: US-FRESENIUS KABI-FK202103074

PATIENT
  Age: 61 Year
  Sex: Male
  Weight: 73 kg

DRUGS (6)
  1. CYCLOPHOSPHAMIDE. [Suspect]
     Active Substance: CYCLOPHOSPHAMIDE
     Indication: B-CELL LYMPHOMA
     Route: 042
     Dates: start: 20201202, end: 20201203
  2. GEMFIBROZIL. [Concomitant]
     Active Substance: GEMFIBROZIL
     Indication: HYPERLIPIDAEMIA
     Route: 048
  3. INVESTIGATIONAL DRUG [Suspect]
     Active Substance: INVESTIGATIONAL PRODUCT
     Indication: B-CELL LYMPHOMA
     Dosage: JCAR017 (LISOCABTAGENE MARALEUCEL) (INJECTION FOR INFUSION) (100X10^6 CAR + T CELLS, SINGLE)
     Route: 042
     Dates: start: 20201210, end: 20201210
  4. IBRUTINIB [Suspect]
     Active Substance: IBRUTINIB
     Indication: B-CELL LYMPHOMA
     Dosage: IBRUTINIB (IBRUTINIB, CROSCARMELLOSE SODIUM, MAGNESIUM STEARATE, MICROCRYSTALLINE CELLULOSE, SODIUM
     Route: 048
     Dates: start: 20201023, end: 20210223
  5. AMLODIPINE BESILATE [Concomitant]
     Active Substance: AMLODIPINE BESYLATE
     Indication: HYPERTENSION
     Route: 048
  6. FLUDARABINE [Suspect]
     Active Substance: FLUDARABINE PHOSPHATE
     Indication: B-CELL LYMPHOMA
     Route: 042
     Dates: start: 20201202, end: 20201203

REACTIONS (1)
  - Febrile neutropenia [Recovered/Resolved]

NARRATIVE: CASE EVENT DATE: 20210309
